FAERS Safety Report 9189143 (Version 1)
Quarter: 2013Q1

REPORT INFORMATION
  Report Type: Spontaneous
  Country: US (occurrence: US)
  Receive Date: 20130326
  Receipt Date: 20130326
  Transmission Date: 20140127
  Serious: Yes (Other)
  Sender: FDA-Public Use
  Company Number: US-PAR PHARMACEUTICAL, INC-2013SCPR005835

PATIENT
  Sex: 0

DRUGS (4)
  1. HYDROXYUREA [Suspect]
     Indication: POLYCYTHAEMIA VERA
     Dosage: 1 DF, QD
     Route: 048
     Dates: start: 1998
  2. DIOVAN [Concomitant]
     Indication: HYPERTENSION
     Dosage: 80 MG, UNKNOWN
     Route: 048
     Dates: start: 2000
  3. ALLOPURINOL [Concomitant]
     Indication: BLOOD URIC ACID ABNORMAL
     Dosage: 100 MG, UNKNOWN
     Route: 048
     Dates: start: 2000
  4. BABY ASPIRIN [Concomitant]
     Indication: THROMBOSIS
     Dosage: 1 MG, UNKNOWN
     Route: 048
     Dates: start: 2000

REACTIONS (2)
  - Impaired healing [Not Recovered/Not Resolved]
  - Skin ulcer [Not Recovered/Not Resolved]
